FAERS Safety Report 8748690 (Version 2)
Quarter: 2012Q4

REPORT INFORMATION
  Report Type: Report from Study
  Country: AT (occurrence: AT)
  Receive Date: 20120827
  Receipt Date: 20120907
  Transmission Date: 20130627
  Serious: Yes (Death)
  Sender: FDA-Public Use
  Company Number: AT-ROCHE-1107242

PATIENT
  Age: 41 Year
  Sex: Male

DRUGS (5)
  1. AVASTIN [Suspect]
     Indication: BRAIN NEOPLASM MALIGNANT
     Route: 042
     Dates: start: 20110816, end: 20111031
  2. IRINOTECAN HYDROCHLORIDE [Suspect]
     Indication: BRAIN NEOPLASM MALIGNANT
  3. FORTECORTIN [Concomitant]
     Route: 065
  4. VIMPAT [Concomitant]
     Dosage: 100 mg one in morning and two in night
     Route: 065
  5. KEPPRA [Concomitant]
     Dosage: 100 mg 1.5 in morning and 1.5 in night
     Route: 065

REACTIONS (2)
  - Neoplasm progression [Fatal]
  - General physical health deterioration [Fatal]
